FAERS Safety Report 21177828 (Version 2)
Quarter: 2022Q3

REPORT INFORMATION
  Report Type: Other
  Country: US (occurrence: None)
  Receive Date: 20220805
  Receipt Date: 20220823
  Transmission Date: 20221027
  Serious: Yes (Other)
  Sender: FDA-Public Use
  Company Number: US-ROCHE-3150032

PATIENT
  Sex: Female

DRUGS (26)
  1. ACTEMRA [Suspect]
     Active Substance: TOCILIZUMAB
     Indication: Rheumatoid arthritis
     Route: 058
  2. ACTEMRA [Suspect]
     Active Substance: TOCILIZUMAB
  3. VENTOLIN HFA [Concomitant]
     Active Substance: ALBUTEROL SULFATE
     Dosage: 108 MCG/ACT INHALE 2 PUFFS EVERY 6 HOURS AS NEEDED
     Route: 048
  4. VITAMIN C [Concomitant]
     Active Substance: ASCORBIC ACID
     Route: 048
  5. CARBOXYMETHYLCELLULOSE SODIUM [Concomitant]
     Active Substance: CARBOXYMETHYLCELLULOSE SODIUM
     Dosage: INSTILL1 DROP INTO BOTH EYES
     Route: 047
  6. COLACE [Concomitant]
     Active Substance: DOCUSATE SODIUM
     Route: 048
  7. CRANBERRY [Concomitant]
     Active Substance: CRANBERRY
     Route: 048
  8. CYMBALTA [Concomitant]
     Active Substance: DULOXETINE HYDROCHLORIDE
     Route: 048
  9. EVENING PRIMROSE OIL\HERBALS [Concomitant]
     Active Substance: EVENING PRIMROSE OIL\HERBALS
     Route: 048
  10. GABAPENTIN [Concomitant]
     Active Substance: GABAPENTIN
     Dosage: AT BEDTIME
     Route: 048
  11. PLAQUENIL [Concomitant]
     Active Substance: HYDROXYCHLOROQUINE SULFATE
     Route: 048
  12. ATARAX [Concomitant]
     Active Substance: HYDROXYZINE HYDROCHLORIDE
     Dosage: TAKE 1 TABLET NIGHTLY
     Route: 048
  13. MIRENA [Concomitant]
     Active Substance: LEVONORGESTREL
     Dosage: 1 DEVICE (20MCG/24 HOUR)
     Route: 015
  14. SYNTHROID [Concomitant]
     Active Substance: LEVOTHYROXINE SODIUM
     Dosage: 100 MCG
     Route: 048
  15. MOBIC [Concomitant]
     Active Substance: MELOXICAM
     Dosage: AS NEEDED
     Route: 048
  16. SINGULAIR [Concomitant]
     Active Substance: MONTELUKAST SODIUM
     Dosage: AT BEDTIME
     Route: 048
  17. ZOFRAN [Concomitant]
     Active Substance: ONDANSETRON HYDROCHLORIDE
     Indication: Nausea
     Dosage: TAKE 1 TABLET EVERY 6 HOURS AS NEEDED
     Route: 048
  18. ZOFRAN [Concomitant]
     Active Substance: ONDANSETRON HYDROCHLORIDE
     Indication: Vomiting
  19. PERCOCET [Concomitant]
     Active Substance: ACETAMINOPHEN\OXYCODONE HYDROCHLORIDE
     Indication: Pain
     Dosage: EVERY 4 HOURS AS NEEDED
     Route: 048
  20. PROTONIX (ENTERIC COATED) [Concomitant]
     Route: 048
  21. INDERAL [Concomitant]
     Active Substance: PROPRANOLOL HYDROCHLORIDE
     Route: 048
  22. SUDAFED [Concomitant]
     Active Substance: PSEUDOEPHEDRINE HYDROCHLORIDE
     Indication: Nasal congestion
     Dosage: EVERY 6 HOURS AS NEEDED
     Route: 048
  23. ZANAFLEX [Concomitant]
     Active Substance: TIZANIDINE HYDROCHLORIDE
     Route: 048
  24. TOPAMAX [Concomitant]
     Active Substance: TOPIRAMATE
     Route: 048
  25. AMBIEN [Concomitant]
     Active Substance: ZOLPIDEM TARTRATE
     Dosage: AT BEDTIME
     Route: 048
  26. ZYRTEC [Concomitant]
     Active Substance: CETIRIZINE HYDROCHLORIDE
     Route: 048

REACTIONS (15)
  - Non-alcoholic steatohepatitis [Unknown]
  - Hyperlipidaemia [Unknown]
  - Rhinitis allergic [Unknown]
  - Complex regional pain syndrome [Unknown]
  - Migraine [Unknown]
  - Osteopenia [Unknown]
  - Apraxia [Unknown]
  - Fibromyalgia [Unknown]
  - Irritable bowel syndrome [Unknown]
  - Blood immunoglobulin G decreased [Unknown]
  - Tricuspid valve incompetence [Unknown]
  - Hypothyroidism [Unknown]
  - Immunosuppression [Unknown]
  - Obesity [Unknown]
  - Insomnia [Unknown]
